FAERS Safety Report 6358419-8 (Version None)
Quarter: 2009Q3

REPORT INFORMATION
  Report Type: 
  Country: None (occurrence: None)
  Receive Date: 20090911
  Receipt Date: 20090831
  Transmission Date: 20100115
  Serious: Yes (Hospitalization)
  Sender: FDA-Public Use
  Company Number: 230032J09BRA

PATIENT
  Age: 43 Year
  Sex: Female

DRUGS (6)
  1. REBIF [Suspect]
     Indication: RELAPSING-REMITTING MULTIPLE SCLEROSIS
     Dosage: 44 MCG, 3 IN 1 WEEKS
     Dates: start: 20060109
  2. MORPHNIE (MORPHINE /00036301/) [Concomitant]
  3. TRAMADOL HYDROHLORIDE [Concomitant]
  4. MULTI-VITAMINS [Concomitant]
  5. TEGRETOL [Concomitant]
  6. FLUOXETINE (FLUOXETINE /007244401/) [Concomitant]

REACTIONS (5)
  - HEADACHE [None]
  - NEURITIS [None]
  - PAIN [None]
  - PYREXIA [None]
  - THROMBOSIS [None]
